FAERS Safety Report 10213236 (Version 2)
Quarter: 2014Q2

REPORT INFORMATION
  Report Type: Spontaneous
  Country: US (occurrence: US)
  Receive Date: 20140603
  Receipt Date: 20140613
  Transmission Date: 20141212
  Serious: Yes (Death)
  Sender: FDA-Public Use
  Company Number: US-009507513-1405USA013819

PATIENT
  Sex: Male

DRUGS (2)
  1. VICTRELIS [Suspect]
     Dosage: 4 CAPSULES (800 MG) BY MOUTH THREE TIMES A DAY STARTING DAY 29
     Route: 048
  2. LISINOPRIL (+) HYDROCHLOROTHIAZIDE [Concomitant]
     Dosage: 20-12.5 UNITS
     Route: 048

REACTIONS (1)
  - General physical condition abnormal [Fatal]
